FAERS Safety Report 5668867-7 (Version None)
Quarter: 2008Q1

REPORT INFORMATION
  Report Type: 
  Country: None (occurrence: None)
  Receive Date: 20080317
  Receipt Date: 20080306
  Transmission Date: 20080703
  Serious: Yes (Other)
  Sender: FDA-Public Use
  Company Number: SE-BRISTOL-MYERS SQUIBB COMPANY-14113054

PATIENT
  Age: 44 Year
  Sex: Female

DRUGS (4)
  1. ENDOXAN [Suspect]
     Indication: BREAST CANCER
     Dates: start: 20060101
  2. EPIRUBICIN [Concomitant]
     Dates: start: 20060101
  3. TAXOTERE [Concomitant]
  4. TRASTUZUMAB [Concomitant]
     Dates: start: 20080101

REACTIONS (4)
  - LEFT VENTRICULAR FAILURE [None]
  - MITRAL VALVE INCOMPETENCE [None]
  - PLEURISY [None]
  - PULMONARY EMBOLISM [None]
